FAERS Safety Report 20748930 (Version 1)
Quarter: 2022Q2

REPORT INFORMATION
  Report Type: Spontaneous
  Country: CH (occurrence: CH)
  Receive Date: 20220426
  Receipt Date: 20220426
  Transmission Date: 20220720
  Serious: Yes (Hospitalization, Other)
  Sender: FDA-Public Use
  Company Number: CH-SUN PHARMACEUTICAL INDUSTRIES LTD-2022RR-334165

PATIENT
  Age: 73 Year
  Sex: Female

DRUGS (2)
  1. DULOXETINE [Interacting]
     Active Substance: DULOXETINE
     Indication: Depression
     Dosage: 60 MILLIGRAM, DAILY
     Route: 048
  2. CIPROFLOXACIN [Interacting]
     Active Substance: CIPROFLOXACIN
     Indication: Urinary tract infection
     Dosage: UNK
     Route: 065

REACTIONS (2)
  - Depressed level of consciousness [Recovering/Resolving]
  - Drug interaction [Unknown]
